FAERS Safety Report 11985883 (Version 3)
Quarter: 2016Q1

REPORT INFORMATION
  Report Type: Report from Study
  Country: US (occurrence: US)
  Receive Date: 20160202
  Receipt Date: 20160205
  Transmission Date: 20160526
  Serious: No
  Sender: FDA-Public Use
  Company Number: US-AMGEN-USASL2016008880

PATIENT
  Age: 54 Year
  Sex: Female

DRUGS (1)
  1. ENBREL [Suspect]
     Active Substance: ETANERCEPT
     Indication: RHEUMATOID ARTHRITIS
     Dosage: 50MG ONCE A WEEK
     Route: 065
     Dates: start: 20160114

REACTIONS (11)
  - Rash [Unknown]
  - Rash erythematous [Unknown]
  - Pain [Unknown]
  - Drug hypersensitivity [Unknown]
  - Urticaria [Unknown]
  - Injection site reaction [Unknown]
  - Injection site warmth [Recovered/Resolved]
  - Injection site swelling [Recovered/Resolved]
  - Swelling [Unknown]
  - Contusion [Unknown]
  - Injection site urticaria [Recovered/Resolved]

NARRATIVE: CASE EVENT DATE: 201601
